FAERS Safety Report 8771030 (Version 2)
Quarter: 2012Q4

REPORT INFORMATION
  Report Type: 
  Country: US (occurrence: US)
  Receive Date: 20120906
  Receipt Date: 20120919
  Transmission Date: 20130627
  Serious: No
  Sender: FDA-Public Use
  Company Number: US-PFIZER INC-2012215582

PATIENT
  Sex: Male

DRUGS (3)
  1. CAMPTOSAR [Suspect]
     Indication: METASTATIC NEOPLASM
     Dosage: UNK
  2. CAMPTOSAR [Suspect]
     Indication: COLON CANCER METASTATIC
  3. VALTREX [Concomitant]
     Dosage: UNK

REACTIONS (2)
  - Disease progression [Unknown]
  - Colon cancer metastatic [Unknown]
